FAERS Safety Report 7093875-1 (Version None)
Quarter: 2010Q4

REPORT INFORMATION
  Report Type: 
  Country: None (occurrence: None)
  Receive Date: 20101110
  Receipt Date: 20101104
  Transmission Date: 20110411
  Serious: Yes (Other)
  Sender: FDA-Public Use
  Company Number: B0683673A

PATIENT
  Sex: Female
  Weight: 63 kg

DRUGS (4)
  1. LAPATINIB [Suspect]
     Indication: BREAST CANCER
     Dosage: 120MG PER DAY
     Route: 048
  2. FLUOROURACIL [Suspect]
     Indication: BREAST CANCER
     Dosage: 1000MG EVERY 3 WEEKS
     Route: 042
     Dates: start: 20100707
  3. EPIRUBICIN [Suspect]
     Indication: BREAST CANCER
     Dosage: 120MG EVERY 3 WEEKS
     Route: 042
     Dates: start: 20100707
  4. CYCLOPHOSPHAMIDE [Suspect]
     Indication: BREAST CANCER
     Dosage: 1000MG EVERY 3 WEEKS
     Route: 042
     Dates: start: 20100707

REACTIONS (4)
  - MUCOSAL INFLAMMATION [None]
  - NEUTROPENIA [None]
  - PYREXIA [None]
  - WHITE BLOOD CELL COUNT DECREASED [None]
